FAERS Safety Report 9988391 (Version 2)
Quarter: 2014Q2

REPORT INFORMATION
  Report Type: Spontaneous
  Country: US (occurrence: US)
  Receive Date: 20140310
  Receipt Date: 20140417
  Transmission Date: 20141212
  Serious: Yes (Hospitalization)
  Sender: FDA-Public Use
  Company Number: US-BIOGENIDEC-2014BI020481

PATIENT
  Age: 40 Year
  Sex: Female

DRUGS (2)
  1. AVONEX [Suspect]
     Indication: MULTIPLE SCLEROSIS
     Route: 030
  2. AVONEX [Suspect]
     Indication: MULTIPLE SCLEROSIS
     Route: 030
     Dates: start: 20120518, end: 20140214

REACTIONS (7)
  - Thrombocytopenia [Not Recovered/Not Resolved]
  - Rash erythematous [Unknown]
  - Restlessness [Unknown]
  - Influenza like illness [Recovered/Resolved]
  - Insomnia [Unknown]
  - Head discomfort [Unknown]
  - Heart rate increased [Unknown]
